FAERS Safety Report 5139841-4 (Version None)
Quarter: 2006Q4

REPORT INFORMATION
  Report Type: 
  Country: None (occurrence: None)
  Receive Date: 20061025
  Receipt Date: 20061025
  Transmission Date: 20070319
  Serious: Yes (Other)
  Sender: FDA-Public Use
  Company Number: None

PATIENT
  Age: 47 Year
  Sex: Female

DRUGS (3)
  1. MAGNEVIST [Suspect]
     Indication: SCAN WITH CONTRAST
     Dosage: 21 ML IV X 1
     Route: 042
     Dates: start: 20060418
  2. PREDNISONE TAB [Concomitant]
  3. BENADRYL [Concomitant]

REACTIONS (3)
  - POST PROCEDURAL COMPLICATION [None]
  - PRURITUS [None]
  - URTICARIA [None]
